FAERS Safety Report 11685707 (Version 2)
Quarter: 2015Q4

REPORT INFORMATION
  Report Type: Spontaneous
  Country: US (occurrence: US)
  Receive Date: 20151030
  Receipt Date: 20151113
  Transmission Date: 20160304
  Serious: No
  Sender: FDA-Public Use
  Company Number: US-ASTRAZENECA-2015SE99969

PATIENT
  Age: 756 Month
  Sex: Female
  Weight: 64 kg

DRUGS (1)
  1. PULMICORT FLEXHALER [Suspect]
     Active Substance: BUDESONIDE
     Indication: ASTHMA
     Dosage: 180 MCG, ONE PUFF TWICE DAILY
     Route: 055

REACTIONS (6)
  - Intentional product misuse [Unknown]
  - Device defective [Unknown]
  - Circumstance or information capable of leading to medication error [Unknown]
  - Asthma [Unknown]
  - Drug ineffective [Not Recovered/Not Resolved]
  - Product taste abnormal [Unknown]

NARRATIVE: CASE EVENT DATE: 201510
